FAERS Safety Report 4612751-4 (Version None)
Quarter: 2005Q1

REPORT INFORMATION
  Report Type: 
  Country: None (occurrence: None)
  Receive Date: 20050318
  Receipt Date: 20050117
  Transmission Date: 20050727
  Serious: Yes (Disabling)
  Sender: FDA-Public Use
  Company Number: FR-MERCK-0501FRA00050

PATIENT
  Age: 59 Year
  Sex: Male
  Weight: 130 kg

DRUGS (5)
  1. COZAAR [Suspect]
     Indication: HYPERTENSION
     Route: 048
     Dates: start: 19990101, end: 20041017
  2. COZAAR [Suspect]
     Route: 048
     Dates: start: 20041018, end: 20050103
  3. AMILORIDE HYDROCHLORIDE [Concomitant]
     Indication: HYPERTENSION
     Route: 048
     Dates: start: 19990101, end: 20040101
  4. HYDROCHLOROTHIAZIDE [Concomitant]
     Indication: HYPERTENSION
     Route: 048
     Dates: start: 19990101, end: 20050101
  5. HYDROCHLOROTHIAZIDE [Concomitant]
     Route: 048
     Dates: start: 20050118

REACTIONS (3)
  - BACK PAIN [None]
  - MUSCULOSKELETAL PAIN [None]
  - SCIATICA [None]
